FAERS Safety Report 9980671 (Version 1)
Quarter: 2014Q1

REPORT INFORMATION
  Report Type: Spontaneous
  Country: CA (occurrence: CA)
  Receive Date: 20140307
  Receipt Date: 20140307
  Transmission Date: 20141002
  Serious: Yes (Hospitalization)
  Sender: FDA-Public Use
  Company Number: CA-AMGEN-CANSP2014015106

PATIENT
  Age: 19 Year
  Sex: Male

DRUGS (11)
  1. ARANESP [Suspect]
     Indication: RENAL FAILURE CHRONIC
     Dosage: 60 MUG, UNK
     Route: 065
     Dates: start: 20140122
  2. FUROSEMIDE [Concomitant]
     Dosage: 120 MG, BID
  3. RENVELA [Concomitant]
     Dosage: 800 MG, TID
  4. TRANDATE [Concomitant]
     Dosage: 400 MG, BID
  5. AMLODIPINE [Concomitant]
     Dosage: 5 MG, QD
  6. COVERSYL                           /00790702/ [Concomitant]
     Dosage: 8 MG, QD
  7. BACTROBAN                          /00753901/ [Concomitant]
     Route: 061
  8. REPLAVITE                          /00058902/ [Concomitant]
     Dosage: UNK UNK, QD
  9. EURO FOLIC [Concomitant]
     Dosage: 5 MG, QD
  10. PMS-HYDROMORPHONE [Concomitant]
     Dosage: 1 MG, Q4H
  11. ACETAMINOPHEN [Concomitant]
     Dosage: 1000 MG, QID

REACTIONS (1)
  - Hospitalisation [Unknown]
